FAERS Safety Report 23367197 (Version 4)
Quarter: 2024Q2

REPORT INFORMATION
  Report Type: Spontaneous
  Country: US (occurrence: US)
  Receive Date: 20240104
  Receipt Date: 20240626
  Transmission Date: 20240716
  Serious: Yes (Hospitalization, Other)
  Sender: FDA-Public Use
  Company Number: US-PFIZER INC-202300456139

PATIENT
  Age: 35 Year
  Sex: Female
  Weight: 55.34 kg

DRUGS (1)
  1. OXBRYTA [Suspect]
     Active Substance: VOXELOTOR
     Indication: Sickle cell anaemia
     Dosage: 500MG, 3 TABLETS ONCE DAILY, ORALLY
     Route: 048

REACTIONS (3)
  - Hypertension [Unknown]
  - Surgery [Unknown]
  - Headache [Unknown]
